FAERS Safety Report 6579812-4 (Version None)
Quarter: 2010Q1

REPORT INFORMATION
  Report Type: 
  Country: None (occurrence: None)
  Receive Date: 20100212
  Receipt Date: 20100204
  Transmission Date: 20100710
  Serious: Yes (Hospitalization)
  Sender: FDA-Public Use
  Company Number: US-ROCHE-684364

PATIENT
  Sex: Female
  Weight: 65.8 kg

DRUGS (2)
  1. CAPECITABINE [Suspect]
     Indication: BREAST CANCER
     Dosage: THREE TABLETS TWICE DAILY
     Route: 048
     Dates: start: 20090610
  2. TYKERB [Suspect]
     Indication: DRUG USE FOR UNKNOWN INDICATION
     Route: 065

REACTIONS (3)
  - OEDEMA PERIPHERAL [None]
  - THROMBOSIS [None]
  - URETERIC OBSTRUCTION [None]
